FAERS Safety Report 9235796 (Version 1)
Quarter: 2013Q1

REPORT INFORMATION
  Report Type: Spontaneous
  Country: US (occurrence: None)
  Receive Date: 20121031
  Receipt Date: 20121031
  Transmission Date: 20140127
  Serious: No
  Sender: FDA-Public Use
  Company Number: PHEH2012US014143

PATIENT
  Age: 45 Year
  Sex: Female

DRUGS (3)
  1. GILENYA (FTY) CAPSULE, 0.5MG [Suspect]
     Indication: MULTIPLE SCLEROSIS
     Route: 048
     Dates: start: 20120112
  2. HYDROCHLOROTHIAZIDE (HYDROCHLOROTHIAZIDE) [Concomitant]
  3. BABY ASPIRIN (ACETYLSALICYLIC ACID) [Concomitant]

REACTIONS (5)
  - Antinuclear antibody positive [None]
  - Gastrooesophageal reflux disease [None]
  - Dry eye [None]
  - Oropharyngeal pain [None]
  - Cough [None]
